FAERS Safety Report 9465770 (Version 1)
Quarter: 2013Q3

REPORT INFORMATION
  Report Type: Spontaneous
  Country: US (occurrence: US)
  Receive Date: 20130820
  Receipt Date: 20130820
  Transmission Date: 20140515
  Serious: Yes (Other)
  Sender: FDA-Public Use
  Company Number: US-ASTELLAS-2013US001023

PATIENT
  Age: 22 Year
  Sex: Female

DRUGS (1)
  1. AMBISOME [Suspect]
     Indication: LEISHMANIASIS
     Dosage: 3 MG/KG, UNKNOWN/D
     Route: 042

REACTIONS (3)
  - Incorrect drug administration rate [Unknown]
  - Blood creatinine increased [Unknown]
  - Blood urea increased [Unknown]
